FAERS Safety Report 7027189-2 (Version None)
Quarter: 2010Q4

REPORT INFORMATION
  Report Type: 
  Country: None (occurrence: None)
  Receive Date: 20101004
  Receipt Date: 20100920
  Transmission Date: 20110411
  Serious: Yes (Life-Threatening, Hospitalization)
  Sender: FDA-Public Use
  Company Number: HR-MYLANLABS-2010S1017125

PATIENT
  Age: 34 Year
  Sex: Female

DRUGS (1)
  1. METHIMAZOLE [Suspect]
     Indication: HYPERTHYROIDISM
     Route: 065

REACTIONS (2)
  - MYASTHENIA GRAVIS [None]
  - MYASTHENIA GRAVIS CRISIS [None]
